FAERS Safety Report 7712678-5 (Version None)
Quarter: 2011Q3

REPORT INFORMATION
  Report Type: 
  Country: None (occurrence: None)
  Receive Date: 20110826
  Receipt Date: 20110823
  Transmission Date: 20111222
  Serious: Yes (Other)
  Sender: FDA-Public Use
  Company Number: GB-MERCK-1108GBR00078

PATIENT
  Age: 11 Year

DRUGS (4)
  1. SINGULAIR [Suspect]
     Route: 048
     Dates: start: 20110518
  2. SINGULAIR [Suspect]
     Route: 048
     Dates: start: 20110501
  3. SINGULAIR [Suspect]
     Indication: ASTHMA
     Route: 048
  4. FLUTICASONE PROPIONATE AND SALMETEROL XINAFOATE [Concomitant]
     Route: 065

REACTIONS (3)
  - DEPRESSION [None]
  - TEARFULNESS [None]
  - DEPRESSED MOOD [None]
